FAERS Safety Report 7139113-2 (Version None)
Quarter: 2010Q4

REPORT INFORMATION
  Report Type: 
  Country: None (occurrence: None)
  Receive Date: 20101206
  Receipt Date: 20101126
  Transmission Date: 20110411
  Serious: Yes (Hospitalization, Other)
  Sender: FDA-Public Use
  Company Number: B0687566A

PATIENT
  Age: 70 Year
  Sex: Female

DRUGS (2)
  1. ARIXTRA [Suspect]
     Indication: THROMBOPHLEBITIS
     Dosage: 7.5MG PER DAY
     Route: 065
     Dates: start: 20101119, end: 20101121
  2. BLOOD PRESSURE MEDICATION [Concomitant]

REACTIONS (2)
  - FACE OEDEMA [None]
  - RASH GENERALISED [None]
